FAERS Safety Report 4842487-6 (Version None)
Quarter: 2005Q4

REPORT INFORMATION
  Report Type: 
  Country: None (occurrence: None)
  Receive Date: 20051129
  Receipt Date: 20051116
  Transmission Date: 20060501
  Serious: Yes (Hospitalization, Other)
  Sender: FDA-Public Use
  Company Number: 2005157997

PATIENT
  Age: 87 Year
  Sex: Female
  Weight: 55.3388 kg

DRUGS (6)
  1. LIPITOR [Suspect]
     Indication: BLOOD CHOLESTEROL INCREASED
     Dosage: 5 MG (10 MG, 1 IN 1 D), ORAL
     Route: 048
  2. WARFARIN SODIUM [Suspect]
     Indication: ILL-DEFINED DISORDER
  3. K-DUR 10 [Concomitant]
  4. NEURONTIN [Concomitant]
  5. AVALIDE [Concomitant]
  6. LANOXIN [Concomitant]

REACTIONS (4)
  - BLINDNESS [None]
  - RENAL EMBOLISM [None]
  - SCIATICA [None]
  - VISUAL ACUITY REDUCED [None]
